FAERS Safety Report 14699775 (Version 2)
Quarter: 2019Q2

REPORT INFORMATION
  Report Type: Spontaneous
  Country: GB (occurrence: GB)
  Receive Date: 20180330
  Receipt Date: 20190501
  Transmission Date: 20190711
  Serious: Yes (Other)
  Sender: FDA-Public Use
  Company Number: GB-MYLANLABS-2018M1018868

PATIENT

DRUGS (1)
  1. HYDROXYCHLOROQUINE [Suspect]
     Active Substance: HYDROXYCHLOROQUINE
     Indication: SJOGREN^S SYNDROME
     Dosage: QD,}1500 G ON VARYING DOSES
     Route: 065

REACTIONS (6)
  - Maculopathy [Unknown]
  - Intentional product misuse [Unknown]
  - Visual field defect [Unknown]
  - Retinal toxicity [Unknown]
  - Visual acuity reduced [Unknown]
  - Off label use [Unknown]
